FAERS Safety Report 7435359-4 (Version None)
Quarter: 2011Q2

REPORT INFORMATION
  Report Type: 
  Country: None (occurrence: None)
  Receive Date: 20110425
  Receipt Date: 20110420
  Transmission Date: 20111010
  Serious: Yes (Hospitalization)
  Sender: FDA-Public Use
  Company Number: B0712317A

PATIENT
  Sex: Female
  Weight: 159.1 kg

DRUGS (3)
  1. GLUCOTROL [Concomitant]
  2. AVANDIA [Suspect]
     Indication: DIABETES MELLITUS
     Dosage: 4MG TWICE PER DAY
     Route: 048
     Dates: start: 20011120, end: 20100329
  3. GLUCOPHAGE [Concomitant]

REACTIONS (3)
  - HYPERTENSION [None]
  - HYPERLIPIDAEMIA [None]
  - OEDEMA [None]
